FAERS Safety Report 17575269 (Version 2)
Quarter: 2020Q1

REPORT INFORMATION
  Report Type: Report from Study
  Country: GB (occurrence: GB)
  Receive Date: 20200324
  Receipt Date: 20200328
  Transmission Date: 20200409
  Serious: Yes (Hospitalization, Other)
  Sender: FDA-Public Use
  Company Number: NVSC2020GB081880

PATIENT
  Age: 59 Year
  Sex: Female
  Weight: 51.5 kg

DRUGS (14)
  1. VENTOLIN [Concomitant]
     Active Substance: ALBUTEROL SULFATE
     Indication: ASTHMA
     Dosage: UNK
     Route: 065
  2. KISQALI [Suspect]
     Active Substance: RIBOCICLIB
     Indication: BREAST CANCER METASTATIC
     Dosage: 600 MG
     Route: 048
     Dates: start: 20190918, end: 20191009
  3. KISQALI [Suspect]
     Active Substance: RIBOCICLIB
     Dosage: 600 OT
     Route: 048
     Dates: start: 20191113, end: 20191204
  4. DIAZEPAM. [Concomitant]
     Active Substance: DIAZEPAM
     Indication: CHILLS
     Dosage: UNK
     Route: 065
     Dates: start: 20191106, end: 20191106
  5. DIAZEPAM. [Concomitant]
     Active Substance: DIAZEPAM
     Indication: PYREXIA
  6. SENNA [Concomitant]
     Active Substance: SENNA LEAF\SENNOSIDES\SENNOSIDES A AND B
     Indication: GASTROINTESTINAL MOTILITY DISORDER
     Dosage: UNK
     Route: 065
     Dates: start: 20191103
  7. KISQALI [Suspect]
     Active Substance: RIBOCICLIB
     Dosage: 400 OT
     Route: 048
     Dates: start: 20200116, end: 20200206
  8. CLENIL [Concomitant]
     Active Substance: BECLOMETHASONE DIPROPIONATE
     Indication: ASTHMA
     Dosage: UNK
     Route: 065
  9. KISQALI [Suspect]
     Active Substance: RIBOCICLIB
     Dosage: 400 OT
     Route: 048
     Dates: start: 20191219, end: 20200109
  10. KISQALI [Suspect]
     Active Substance: RIBOCICLIB
     Dosage: 400 OT
     Route: 048
     Dates: start: 20200213
  11. LETROZOLE. [Concomitant]
     Active Substance: LETROZOLE
     Indication: BREAST CANCER METASTATIC
     Dosage: 2.5 MG
     Route: 065
     Dates: start: 20190911
  12. SERTRALINE [Concomitant]
     Active Substance: SERTRALINE HYDROCHLORIDE
     Indication: DEPRESSION
     Dosage: UNK
     Route: 065
  13. KISQALI [Suspect]
     Active Substance: RIBOCICLIB
     Dosage: 600 OT
     Route: 048
     Dates: start: 20191016, end: 20191106
  14. ZOPICLONE [Concomitant]
     Active Substance: ZOPICLONE
     Indication: INITIAL INSOMNIA
     Dosage: UNK
     Route: 065
     Dates: start: 20191103

REACTIONS (6)
  - Lethargy [Recovered/Resolved]
  - Dyspnoea [Recovered/Resolved]
  - Back pain [Not Recovered/Not Resolved]
  - Neutropenia [Recovered/Resolved]
  - Pyrexia [Recovered/Resolved]
  - Hot flush [Not Recovered/Not Resolved]

NARRATIVE: CASE EVENT DATE: 201910
